FAERS Safety Report 22222522 (Version 4)
Quarter: 2023Q2

REPORT INFORMATION
  Report Type: Report from Study
  Country: AE (occurrence: None)
  Receive Date: 20230418
  Receipt Date: 20230601
  Transmission Date: 20230722
  Serious: Yes (Hospitalization)
  Sender: FDA-Public Use
  Company Number: 2023A086996

PATIENT
  Age: 45 Year
  Sex: Male
  Weight: 89 kg

DRUGS (9)
  1. EVUSHELD [Suspect]
     Active Substance: CILGAVIMAB\TIXAGEVIMAB
     Indication: COVID-19 treatment
     Dosage: 600 MG (300 MG TIXAGEVIMAB/300 MG CILGAVIMAB), ONCE/SINGLE ADMINISTRATION
     Route: 030
     Dates: start: 20221221
  2. ZOVIRAX [Concomitant]
     Active Substance: ACYCLOVIR
     Indication: Prophylaxis
     Route: 048
     Dates: start: 20221213
  3. PANTOLIFE [Concomitant]
     Indication: Antiemetic supportive care
     Route: 048
     Dates: start: 20221213
  4. DIFLUCAN [Concomitant]
     Active Substance: FLUCONAZOLE
     Indication: Prophylaxis
     Route: 048
     Dates: start: 20221213
  5. VOMRAN [Concomitant]
     Indication: Antiemetic supportive care
     Route: 048
     Dates: start: 20221213
  6. SINOPHARM [Concomitant]
     Indication: COVID-19 prophylaxis
     Dates: start: 20210106, end: 20210106
  7. SINOPHARM [Concomitant]
     Indication: COVID-19 prophylaxis
     Dates: start: 20210127, end: 20210127
  8. SINOPHARM [Concomitant]
     Indication: COVID-19 prophylaxis
     Dates: start: 20210902, end: 20210902
  9. SINOPHARM [Concomitant]
     Indication: COVID-19 prophylaxis
     Dates: start: 20220520, end: 20220520

REACTIONS (1)
  - COVID-19 [Recovered/Resolved]

NARRATIVE: CASE EVENT DATE: 20230216
